FAERS Safety Report 15642714 (Version 1)
Quarter: 2018Q4

REPORT INFORMATION
  Report Type: Report from Study
  Country: CA (occurrence: CA)
  Receive Date: 20181121
  Receipt Date: 20181121
  Transmission Date: 20190205
  Serious: Yes (Other)
  Sender: FDA-Public Use
  Company Number: CA-TEVA-2018-CA-978628

PATIENT
  Age: 55 Year
  Sex: Female

DRUGS (17)
  1. ROSUVASTATIN CALCIUM. [Suspect]
     Active Substance: ROSUVASTATIN CALCIUM
     Indication: PRODUCT USED FOR UNKNOWN INDICATION
     Route: 065
  2. MAGNESIUM CHLORIDE. [Concomitant]
     Active Substance: MAGNESIUM CHLORIDE
  3. PROLIA [Suspect]
     Active Substance: DENOSUMAB
     Indication: OSTEOPENIA
     Route: 065
  4. GABAPENTIN. [Concomitant]
     Active Substance: GABAPENTIN
     Indication: PAIN
  5. LORAZEPAM. [Concomitant]
     Active Substance: LORAZEPAM
     Indication: TENDONITIS
  6. CALCIUM [Concomitant]
     Active Substance: CALCIUM
  7. ERGOCALCIFEROL. [Concomitant]
     Active Substance: ERGOCALCIFEROL
  8. CONSTELLA [Concomitant]
     Active Substance: LINACLOTIDE
     Indication: ABDOMINAL DISCOMFORT
     Dosage: 200 ML DAILY;
  9. COPAXONE [Concomitant]
     Active Substance: GLATIRAMER ACETATE
  10. CHLORDIAZEPOXIDE/CLIDINIUM BROMIDE [Concomitant]
     Active Substance: CHLORDIAZEPOXIDE\CLIDINIUM BROMIDE
  11. MMUNOGLOBULINS [Concomitant]
     Indication: IMMUNODEFICIENCY COMMON VARIABLE
     Route: 042
  12. MACROGOL 3350 [Concomitant]
     Active Substance: POLYETHYLENE GLYCOL 3350
     Indication: ABDOMINAL DISCOMFORT
  13. BIFIDOBACTERIUM LONGUM/LACTOBACILLUS [Concomitant]
  14. ERGOCALCIFEROL. [Concomitant]
     Active Substance: ERGOCALCIFEROL
  15. AMITRIPTYLINE [Concomitant]
     Active Substance: AMITRIPTYLINE
     Indication: MIGRAINE
  16. AMITRIPTYLINE [Concomitant]
     Active Substance: AMITRIPTYLINE
     Indication: HYPOAESTHESIA
  17. DPANTOTHENATE/ERGOCALCIFEROL/NICOTINMIDE/PYRIDOXINE HYDROCHLORIDE/RIBO [Concomitant]

REACTIONS (5)
  - Arthralgia [Not Recovered/Not Resolved]
  - Off label use [Not Recovered/Not Resolved]
  - Osteoporosis [Not Recovered/Not Resolved]
  - Fatigue [Not Recovered/Not Resolved]
  - Immunoglobulins decreased [Not Recovered/Not Resolved]
